FAERS Safety Report 15242764 (Version 2)
Quarter: 2018Q4

REPORT INFORMATION
  Report Type: Spontaneous
  Country: CA (occurrence: CA)
  Receive Date: 20180806
  Receipt Date: 20181107
  Transmission Date: 20190204
  Serious: Yes (Hospitalization)
  Sender: FDA-Public Use
  Company Number: CA-CELLTRION INC.-2018CA021607

PATIENT

DRUGS (11)
  1. INFLECTRA [Suspect]
     Active Substance: INFLIXIMAB-DYYB
     Indication: CROHN^S DISEASE
     Dosage: 500 MG, EVERY 0,2,6 WEEKS, THEN EVERY 12 WEEKS)
     Route: 042
     Dates: start: 20180705
  2. MIDAMOR [Concomitant]
     Active Substance: AMILORIDE HYDROCHLORIDE
  3. AMLODIPINE [Concomitant]
     Active Substance: AMLODIPINE BESYLATE
  4. JARDIANCE [Concomitant]
     Active Substance: EMPAGLIFLOZIN
  5. INFLECTRA [Suspect]
     Active Substance: INFLIXIMAB-DYYB
     Dosage: 500 MG, CYCLIC (EVERY 0,2,   6 WEEKS, THEN EVERY 12   WEEKS)
     Route: 042
     Dates: start: 20180705, end: 20180705
  6. AZATHIOPRINE. [Concomitant]
     Active Substance: AZATHIOPRINE
     Dosage: UNK
  7. REPAGLINIDE. [Concomitant]
     Active Substance: REPAGLINIDE
  8. ZOPICLONE [Concomitant]
     Active Substance: ZOPICLONE
  9. ROSUVASTATIN. [Concomitant]
     Active Substance: ROSUVASTATIN
  10. OLESTYR [Concomitant]
     Active Substance: CHOLESTYRAMINE
  11. INSULIN [Concomitant]
     Active Substance: INSULIN NOS

REACTIONS (5)
  - Drug specific antibody present [Unknown]
  - Serum sickness [Unknown]
  - Joint stiffness [Recovering/Resolving]
  - Contraindicated product administered [Unknown]
  - Arthralgia [Recovering/Resolving]
